FAERS Safety Report 5498431-4 (Version None)
Quarter: 2007Q4

REPORT INFORMATION
  Report Type: 
  Country: None (occurrence: None)
  Receive Date: 20071024
  Receipt Date: 20071012
  Transmission Date: 20080405
  Serious: Yes (Other)
  Sender: FDA-Public Use
  Company Number: 2007AP001147

PATIENT
  Age: 71 Year
  Sex: Male

DRUGS (8)
  1. MEGESTROL ACETATE [Suspect]
     Indication: CACHEXIA
     Dosage: 800 MG;QD;
  2. PACLITAXEL [Concomitant]
  3. CARBOPLATIN [Concomitant]
  4. CAPECITABINE [Concomitant]
  5. OXYCODONE HCL [Concomitant]
  6. ESCITALOPRAM OXALATE [Concomitant]
  7. LEVOTHYROXINE SODIUM [Concomitant]
  8. FLUDROCORTISONE ACETATE [Concomitant]

REACTIONS (5)
  - ADRENAL INSUFFICIENCY [None]
  - ANDROGEN DEFICIENCY [None]
  - ERYTHEMA [None]
  - SYNCOPE [None]
  - THYROID FUNCTION TEST ABNORMAL [None]
